FAERS Safety Report 14929630 (Version 1)
Quarter: 2018Q2

REPORT INFORMATION
  Report Type: Spontaneous
  Country: FR (occurrence: FR)
  Receive Date: 20180523
  Receipt Date: 20180523
  Transmission Date: 20180711
  Serious: Yes (Other)
  Sender: FDA-Public Use
  Company Number: PHHY2018FR002977

PATIENT
  Age: 57 Year
  Sex: Male

DRUGS (2)
  1. INEXIUM [Concomitant]
     Active Substance: ESOMEPRAZOLE
     Indication: PROPHYLAXIS
     Dosage: 40 MG, BID
     Route: 065
  2. VOLTARENE (DICLOFENAC SODIUM) [Suspect]
     Active Substance: DICLOFENAC SODIUM
     Indication: BACK PAIN
     Dosage: 75 MG, BID
     Route: 048
     Dates: start: 201805

REACTIONS (5)
  - Pain [Unknown]
  - Weight decreased [Unknown]
  - Gait inability [Unknown]
  - Phimosis [Not Recovered/Not Resolved]
  - Localised oedema [Unknown]

NARRATIVE: CASE EVENT DATE: 201805
